FAERS Safety Report 4325290-5 (Version None)
Quarter: 2004Q1

REPORT INFORMATION
  Report Type: 
  Country: None (occurrence: None)
  Receive Date: 20040324
  Receipt Date: 20040309
  Transmission Date: 20041129
  Serious: Yes (Hospitalization)
  Sender: FDA-Public Use
  Company Number: FR-SHR-04-022693

PATIENT
  Age: 53 Year
  Sex: Female

DRUGS (3)
  1. SOTALOL HCL [Suspect]
     Indication: ATRIAL FIBRILLATION
     Dosage: 40 MG, 2X/DAY, ORAL
     Route: 048
     Dates: start: 20040120, end: 20040127
  2. PREVISCAN (FLUINDIONE) [Suspect]
     Indication: ATRIAL FIBRILLATION
     Dosage: 20 MG, 1X/DAY, ORAL
     Route: 048
     Dates: start: 20040120, end: 20040127
  3. TENORMIN [Concomitant]

REACTIONS (2)
  - ANGIONEUROTIC OEDEMA [None]
  - DYSPNOEA [None]
